FAERS Safety Report 11638919 (Version 1)
Quarter: 2015Q4

REPORT INFORMATION
  Report Type: Spontaneous
  Country: US (occurrence: US)
  Receive Date: 20151018
  Receipt Date: 20151018
  Transmission Date: 20160304
  Serious: No
  Sender: FDA-Public Use
  Company Number: US-B.I. PHARMACEUTICALS,INC./RIDGEFIELD-2015-BI-55193BP

PATIENT
  Sex: Female

DRUGS (3)
  1. JARDIANCE [Suspect]
     Active Substance: EMPAGLIFLOZIN
     Indication: DIABETES MELLITUS INADEQUATE CONTROL
     Dosage: 25 MG
     Route: 065
     Dates: start: 20150404, end: 20150925
  2. METFORMIN [Concomitant]
     Active Substance: METFORMIN HYDROCHLORIDE
     Indication: DIABETES MELLITUS INADEQUATE CONTROL
     Dosage: 1000 MG
     Route: 065
  3. VASOTEC [Concomitant]
     Active Substance: ENALAPRIL MALEATE
     Indication: PRODUCT USED FOR UNKNOWN INDICATION
     Dosage: 20 MG
     Route: 065

REACTIONS (1)
  - Blood potassium increased [Recovered/Resolved]
